FAERS Safety Report 10049272 (Version 2)
Quarter: 2014Q2

REPORT INFORMATION
  Report Type: Spontaneous
  Country: US (occurrence: US)
  Receive Date: 20140401
  Receipt Date: 20140415
  Transmission Date: 20141212
  Serious: Yes (Other)
  Sender: FDA-Public Use
  Company Number: US-BIOGENIDEC-2014BI026575

PATIENT
  Age: 62 Year
  Sex: Female

DRUGS (13)
  1. TECFIDERA [Suspect]
     Indication: MULTIPLE SCLEROSIS
     Route: 048
     Dates: start: 201309, end: 201309
  2. TECFIDERA [Suspect]
     Indication: MULTIPLE SCLEROSIS
     Route: 048
     Dates: start: 20130909
  3. AMPYRA [Concomitant]
     Route: 048
     Dates: start: 20111013
  4. CALCIUM 600/VITAMIN D 600-400 [Concomitant]
     Route: 048
     Dates: start: 20100322
  5. CALCIUM 600/VITAMIN D 600-400 [Concomitant]
     Route: 048
     Dates: start: 20100322
  6. DERMA-SMOOTHE/FS BODY 0.01% EXTERNAL OIL [Concomitant]
     Route: 061
     Dates: start: 20080925
  7. DONEPEZIL HCL [Concomitant]
     Route: 048
     Dates: start: 20080915
  8. MODAFINIL [Concomitant]
     Route: 048
     Dates: start: 20081218
  9. OMEPRAZOLE DR [Concomitant]
     Route: 048
     Dates: start: 20090119
  10. OXYBUTYNIN CHLORIDE [Concomitant]
     Route: 048
     Dates: start: 20100208
  11. TRIAMCINOLONE ACETONIDE 0.1% EXTERNAL OINTMENT [Concomitant]
     Route: 061
     Dates: start: 20110406
  12. VENLAFAXINE HCL ER [Concomitant]
     Route: 048
     Dates: start: 20131108
  13. VITAMIN D [Concomitant]
     Route: 048
     Dates: start: 20111013

REACTIONS (1)
  - Lung adenocarcinoma [Not Recovered/Not Resolved]
